FAERS Safety Report 4948511-4 (Version None)
Quarter: 2006Q1

REPORT INFORMATION
  Report Type: 
  Country: None (occurrence: None)
  Receive Date: 20060201
  Receipt Date: 20051109
  Transmission Date: 20060701
  Serious: No
  Sender: FDA-Public Use
  Company Number: 2005PV004258

PATIENT
  Age: 67 Year
  Sex: Female
  Weight: 133.3575 kg

DRUGS (2)
  1. BYETTA [Suspect]
     Indication: DIABETES MELLITUS NON-INSULIN-DEPENDENT
     Dosage: SEE IMAGE
     Route: 058
     Dates: start: 20050917, end: 20051017
  2. BYETTA [Suspect]
     Indication: DIABETES MELLITUS NON-INSULIN-DEPENDENT
     Dosage: SEE IMAGE
     Route: 058
     Dates: start: 20051018

REACTIONS (11)
  - ABDOMINAL PAIN UPPER [None]
  - ABNORMAL FAECES [None]
  - BLOOD GLUCOSE DECREASED [None]
  - DECREASED APPETITE [None]
  - DIARRHOEA [None]
  - GASTROOESOPHAGEAL REFLUX DISEASE [None]
  - MUCOUS STOOLS [None]
  - NAUSEA [None]
  - RETCHING [None]
  - TREMOR [None]
  - WEIGHT DECREASED [None]
